FAERS Safety Report 18506868 (Version 3)
Quarter: 2021Q1

REPORT INFORMATION
  Report Type: Spontaneous
  Country: US (occurrence: US)
  Receive Date: 20201116
  Receipt Date: 20210111
  Transmission Date: 20210419
  Serious: No
  Sender: FDA-Public Use
  Company Number: US-PFIZER INC-2020447052

PATIENT
  Age: 70 Year
  Sex: Female
  Weight: 89.81 kg

DRUGS (2)
  1. PHENYTOIN SODIUM. [Suspect]
     Active Substance: PHENYTOIN SODIUM
     Indication: SEIZURE
  2. PHENYTOIN SODIUM. [Suspect]
     Active Substance: PHENYTOIN SODIUM
     Indication: EPILEPSY
     Dosage: 500 MG, DAILY(200 MG IN THE AM, 100 MG MIDDAY AND 200 MG AT NIGHT DAILY)
     Dates: start: 20201209

REACTIONS (1)
  - Drug ineffective [Unknown]
